FAERS Safety Report 12458470 (Version 1)
Quarter: 2016Q2

REPORT INFORMATION
  Report Type: Spontaneous
  Country: US (occurrence: None)
  Receive Date: 20160610
  Receipt Date: 20160610
  Transmission Date: 20160815
  Serious: No
  Sender: FDA-Public Use
  Company Number: None

PATIENT
  Age: 25 Year
  Sex: Female

DRUGS (1)
  1. OTEZLA [Suspect]
     Active Substance: APREMILAST
     Indication: POLYARTHRITIS
     Dosage: JAN CURRENTLY ON MED
     Route: 048

REACTIONS (2)
  - Drug dose omission [None]
  - Nausea [None]

NARRATIVE: CASE EVENT DATE: 20160109
